FAERS Safety Report 7908697-6 (Version None)
Quarter: 2011Q4

REPORT INFORMATION
  Report Type: 
  Country: None (occurrence: None)
  Receive Date: 20111111
  Receipt Date: 20111104
  Transmission Date: 20120403
  Serious: Yes (Hospitalization, Other)
  Sender: FDA-Public Use
  Company Number: NL-AMGEN-NLDSP2011045422

PATIENT
  Age: 59 Year
  Sex: Female
  Weight: 53.968 kg

DRUGS (9)
  1. ENBREL [Suspect]
     Indication: PSORIATIC ARTHROPATHY
     Dosage: 50 MG, WEEKLY
     Dates: start: 20110726
  2. CALCIUM CARBONATE [Concomitant]
     Dosage: UNK
  3. ALENDRONIC ACID [Concomitant]
     Indication: OSTEOPOROSIS
     Dosage: UNK
  4. CELEBREX [Concomitant]
     Dosage: UNK
  5. METHOTREXATE SODIUM [Concomitant]
     Indication: PSORIATIC ARTHROPATHY
     Dosage: 15 MG, UNK
  6. ANTICOAGULANT CITRATE DEXTROSE [Concomitant]
     Dosage: UNK
  7. PREDNISONE [Concomitant]
     Dosage: UNK
  8. FOLIC ACID [Concomitant]
     Indication: PSORIATIC ARTHROPATHY
     Dosage: 5 MG, UNK
  9. MARCUMAR [Concomitant]
     Dosage: UNK

REACTIONS (9)
  - OEDEMA PERIPHERAL [None]
  - PAIN IN EXTREMITY [None]
  - INFECTION [None]
  - GAIT DISTURBANCE [None]
  - PSORIATIC ARTHROPATHY [None]
  - HYPOAESTHESIA [None]
  - DRUG INEFFECTIVE [None]
  - VASCULITIS [None]
  - LOWER LIMB FRACTURE [None]
